FAERS Safety Report 17103854 (Version 1)
Quarter: 2019Q4

REPORT INFORMATION
  Report Type: Spontaneous
  Country: US (occurrence: US)
  Receive Date: 20191203
  Receipt Date: 20191203
  Transmission Date: 20200122
  Serious: No
  Sender: FDA-Public Use
  Company Number: US-009507513-1911USA007149

PATIENT
  Age: 20 Year
  Sex: Female
  Weight: 102.06 kg

DRUGS (1)
  1. NEXPLANON [Suspect]
     Active Substance: ETONOGESTREL
     Indication: CONTRACEPTION
     Dosage: LEFT ARM-IMPLANT, 1 IMPLANT,  EVERY 3 YEARS
     Route: 059
     Dates: start: 201702

REACTIONS (4)
  - Menstruation irregular [Recovered/Resolved]
  - Acne [Not Recovered/Not Resolved]
  - Menorrhagia [Recovered/Resolved]
  - Vaginal infection [Not Recovered/Not Resolved]

NARRATIVE: CASE EVENT DATE: 2017
